FAERS Safety Report 9764646 (Version 5)
Quarter: 2014Q1

REPORT INFORMATION
  Report Type: Report from Study
  Country: JP (occurrence: JP)
  Receive Date: 20131217
  Receipt Date: 20140123
  Transmission Date: 20141002
  Serious: Yes (Death, Hospitalization)
  Sender: FDA-Public Use
  Company Number: JP-009507513-1312JPN005885

PATIENT
  Age: 82 Year
  Sex: Female
  Weight: 43.1 kg

DRUGS (11)
  1. DEXAMETHASONE [Suspect]
     Indication: PLASMA CELL MYELOMA
     Dosage: 20MG DAILY ON DAY 2, 4, 5, 8, 9, 11 AND 12
     Route: 048
     Dates: start: 20130730, end: 20131206
  2. BORTEZOMIB [Suspect]
     Indication: PLASMA CELL MYELOMA
     Dosage: 1.8 MG (1.3 MG/M2) DAILY ON DAY 4, 8 AND 11,
     Route: 058
     Dates: start: 20130730, end: 20131206
  3. TABALUMAB [Suspect]
     Indication: PLASMA CELL MYELOMA
     Dosage: DAILY DOSE: 300 MG(FORMULATION: VIAL)
     Route: 042
     Dates: start: 20130730, end: 20131126
  4. BONALON [Concomitant]
     Indication: OSTEOPOROSIS
     Dosage: UNK
     Route: 048
     Dates: start: 20120507, end: 20131202
  5. ZOVIRAX [Concomitant]
     Indication: INFECTION PROPHYLAXIS
     Dosage: UNK
     Route: 048
     Dates: start: 20120507, end: 20131207
  6. NEXIUM [Concomitant]
     Indication: PROPHYLAXIS AGAINST GASTROINTESTINAL ULCER
     Dosage: UNK
     Route: 048
     Dates: start: 20130226, end: 20131207
  7. PANTOSIN [Concomitant]
     Indication: CONSTIPATION
     Dosage: UNK
     Route: 048
     Dates: start: 20120911, end: 20131207
  8. MAGMITT [Concomitant]
     Indication: CONSTIPATION
     Dosage: UNK
     Route: 048
     Dates: start: 20120911, end: 20131207
  9. BAKTAR [Concomitant]
     Indication: INFECTION PROPHYLAXIS
     Dosage: UNK
     Route: 048
     Dates: start: 20130705, end: 20131207
  10. DIFLUCAN [Concomitant]
     Indication: INFECTION PROPHYLAXIS
     Dosage: UNK
     Route: 048
     Dates: start: 20131030, end: 20131207
  11. LATANOPROST [Concomitant]
     Indication: GLAUCOMA
     Route: 065

REACTIONS (3)
  - Gastroenteritis [Not Recovered/Not Resolved]
  - Subarachnoid haemorrhage [Fatal]
  - Subdural haematoma [Fatal]
